FAERS Safety Report 12598179 (Version 1)
Quarter: 2016Q3

REPORT INFORMATION
  Report Type: Report from Study
  Country: ZA (occurrence: ZA)
  Receive Date: 20160727
  Receipt Date: 20160727
  Transmission Date: 20161109
  Serious: Yes (Death)
  Sender: FDA-Public Use
  Company Number: ZA-AMGEN-ZAFSL2016095412

PATIENT
  Age: 67 Year
  Sex: Male

DRUGS (1)
  1. ARANESP [Suspect]
     Active Substance: DARBEPOETIN ALFA
     Indication: PRODUCT USED FOR UNKNOWN INDICATION
     Dosage: 40 UNK, Q2WK
     Route: 058
     Dates: start: 201505

REACTIONS (3)
  - Death [Fatal]
  - General physical health deterioration [Unknown]
  - Disease progression [Unknown]

NARRATIVE: CASE EVENT DATE: 201607
